FAERS Safety Report 16235323 (Version 1)
Quarter: 2019Q2

REPORT INFORMATION
  Report Type: Spontaneous
  Country: DE (occurrence: DE)
  Receive Date: 20190424
  Receipt Date: 20190424
  Transmission Date: 20190711
  Serious: Yes (Other)
  Sender: FDA-Public Use
  Company Number: DE-MYLANLABS-2019M1037861

PATIENT
  Age: 20 Year
  Sex: Female

DRUGS (4)
  1. LEPONEX [Suspect]
     Active Substance: CLOZAPINE
     Dosage: 200 MILLIGRAM, QD
     Route: 048
  2. ZIPRASIDONE. [Concomitant]
     Active Substance: ZIPRASIDONE
     Indication: PSYCHOTIC DISORDER
     Dosage: UNK
     Route: 048
     Dates: start: 200210, end: 20021104
  3. LEPONEX [Suspect]
     Active Substance: CLOZAPINE
     Indication: PSYCHOTIC DISORDER
     Dosage: 250 MILLIGRAM, QD
     Route: 048
  4. RISPERIDONE. [Concomitant]
     Active Substance: RISPERIDONE
     Indication: PSYCHOTIC DISORDER
     Dosage: UNKNOWN
     Route: 048
     Dates: start: 200210, end: 20021104

REACTIONS (2)
  - Seizure [Recovered/Resolved]
  - Tongue biting [Recovered/Resolved]

NARRATIVE: CASE EVENT DATE: 200210
